FAERS Safety Report 19132115 (Version 1)
Quarter: 2021Q2

REPORT INFORMATION
  Report Type: Spontaneous
  Country: FR (occurrence: FR)
  Receive Date: 20210413
  Receipt Date: 20210413
  Transmission Date: 20210717
  Serious: Yes (Other)
  Sender: FDA-Public Use
  Company Number: FR-TEVA-2021-FR-1899390

PATIENT
  Age: 39 Year

DRUGS (2)
  1. CODEINE [Suspect]
     Active Substance: CODEINE
     Dosage: 240 MG
     Route: 048
  2. OLANZAPINE. [Suspect]
     Active Substance: OLANZAPINE
     Dosage: 30 TO 50 MG / DAY
     Route: 048

REACTIONS (1)
  - Drug dependence [Not Recovered/Not Resolved]
